FAERS Safety Report 10213347 (Version 1)
Quarter: 2014Q2

REPORT INFORMATION
  Report Type: Spontaneous
  Country: US (occurrence: None)
  Receive Date: 20140530
  Receipt Date: 20140530
  Transmission Date: 20141212
  Serious: Yes (Hospitalization)
  Sender: FDA-Public Use
  Company Number: None

PATIENT
  Age: 85 Year
  Sex: Male
  Weight: 77.9 kg

DRUGS (1)
  1. WARFARIN [Suspect]
     Dosage: MG, PO
     Route: 048
     Dates: start: 20140707

REACTIONS (2)
  - Haemorrhage intracranial [None]
  - International normalised ratio increased [None]
